FAERS Safety Report 20589183 (Version 4)
Quarter: 2023Q4

REPORT INFORMATION
  Report Type: Report from Study
  Country: JP (occurrence: JP)
  Receive Date: 20220314
  Receipt Date: 20231128
  Transmission Date: 20240110
  Serious: Yes (Other)
  Sender: FDA-Public Use
  Company Number: JP-ASTELLAS-2022JP004112

PATIENT
  Age: 78 Year
  Sex: Male
  Weight: 60 kg

DRUGS (6)
  1. ENFORTUMAB VEDOTIN [Suspect]
     Active Substance: ENFORTUMAB VEDOTIN
     Indication: Transitional cell carcinoma
     Route: 041
     Dates: start: 20220208, end: 20220222
  2. ENFORTUMAB VEDOTIN [Suspect]
     Active Substance: ENFORTUMAB VEDOTIN
     Indication: Malignant neoplasm of renal pelvis
     Route: 041
     Dates: start: 20220316, end: 20220323
  3. CALONAL [Concomitant]
     Active Substance: ACETAMINOPHEN
     Indication: Pyrexia
     Dosage: UNK UNK, THRICE DAILY
     Route: 065
     Dates: start: 20220215
  4. PEGFILGRASTIM [Concomitant]
     Active Substance: PEGFILGRASTIM
     Indication: Myelosuppression
     Dosage: UNK UNK, UNKNOWN FREQ.
     Route: 065
  5. Myser [Concomitant]
     Indication: Rash
     Dosage: AS NEEDED G, ONCE DAILY
     Route: 065
     Dates: start: 20220222, end: 20220322
  6. FILGRASTIM [Concomitant]
     Active Substance: FILGRASTIM
     Indication: Product used for unknown indication
     Route: 065
     Dates: start: 20220304

REACTIONS (7)
  - Myelosuppression [Recovered/Resolved]
  - Neuropathy peripheral [Recovering/Resolving]
  - Malaise [Recovered/Resolved]
  - Rash [Recovering/Resolving]
  - Hypoaesthesia [Not Recovered/Not Resolved]
  - Pyrexia [Recovered/Resolved]
  - Alopecia [Not Recovered/Not Resolved]

NARRATIVE: CASE EVENT DATE: 20220201
